FAERS Safety Report 14380991 (Version 1)
Quarter: 2018Q1

REPORT INFORMATION
  Report Type: Spontaneous
  Country: CA (occurrence: CA)
  Receive Date: 20180112
  Receipt Date: 20180112
  Transmission Date: 20180509
  Serious: Yes (Other)
  Sender: FDA-Public Use
  Company Number: CA-ABBVIE-18S-028-2221381-00

PATIENT
  Age: 88 Year
  Sex: Male

DRUGS (1)
  1. ANDROGEL [Suspect]
     Active Substance: TESTOSTERONE
     Indication: BLOOD TESTOSTERONE INCREASED
     Dosage: UNK
     Route: 062
     Dates: start: 20171211

REACTIONS (3)
  - Ear infection [Not Recovered/Not Resolved]
  - Eye infection [Not Recovered/Not Resolved]
  - Pharyngitis [Not Recovered/Not Resolved]

NARRATIVE: CASE EVENT DATE: 20171211
